FAERS Safety Report 21280470 (Version 2)
Quarter: 2022Q4

REPORT INFORMATION
  Report Type: Report from Study
  Country: CA (occurrence: CA)
  Receive Date: 20220901
  Receipt Date: 20221020
  Transmission Date: 20230112
  Serious: Yes (Other)
  Sender: FDA-Public Use
  Company Number: CA-JNJFOC-20220719569

PATIENT
  Age: 24 Year
  Sex: Female
  Weight: 68.6 kg

DRUGS (2)
  1. SIMPONI [Suspect]
     Active Substance: GOLIMUMAB
     Indication: Crohn^s disease
     Route: 058
     Dates: start: 20201229, end: 20220625
  2. SIMPONI [Suspect]
     Active Substance: GOLIMUMAB
     Route: 058
     Dates: start: 20221012

REACTIONS (6)
  - Crohn^s disease [Not Recovered/Not Resolved]
  - Abscess limb [Not Recovered/Not Resolved]
  - Infection [Recovering/Resolving]
  - Cyst [Unknown]
  - Tooth infection [Not Recovered/Not Resolved]
  - Off label use [Unknown]

NARRATIVE: CASE EVENT DATE: 20220613
